FAERS Safety Report 4354463-0 (Version None)
Quarter: 2004Q2

REPORT INFORMATION
  Report Type: 
  Country: None (occurrence: None)
  Receive Date: 20040503
  Receipt Date: 20040428
  Transmission Date: 20050107
  Serious: Yes (Other)
  Sender: FDA-Public Use
  Company Number: 2004-04-1523

PATIENT
  Sex: Female

DRUGS (4)
  1. AERIUS (DESLORATADINE) CAPSULES 'LIKE CLARINEX' [Suspect]
     Indication: RHINITIS ALLERGIC
     Dosage: 1 ORAL
     Route: 048
     Dates: start: 20040416, end: 20040416
  2. FLUCTINE (FLUOXETINE HCL) [Concomitant]
  3. THYROID TAB [Concomitant]
  4. PRAVASTATIN [Concomitant]

REACTIONS (1)
  - VENTRICULAR EXTRASYSTOLES [None]
